FAERS Safety Report 5530327-1 (Version None)
Quarter: 2007Q4

REPORT INFORMATION
  Report Type: 
  Country: None (occurrence: None)
  Receive Date: 20071130
  Receipt Date: 20070713
  Transmission Date: 20080405
  Serious: No
  Sender: FDA-Public Use
  Company Number: A0665350A

PATIENT
  Age: 16 Year
  Sex: Male

DRUGS (2)
  1. AMOXICILLIN + CLAVULANATE POTASSIUM [Suspect]
     Indication: DRUG USE FOR UNKNOWN INDICATION
     Route: 048
     Dates: start: 20070611
  2. SUDAFED 12 HOUR [Suspect]
     Route: 048
     Dates: start: 20070611, end: 20070611

REACTIONS (5)
  - ERYTHEMA [None]
  - EYE INFLAMMATION [None]
  - HYPERSENSITIVITY [None]
  - OCULAR HYPERAEMIA [None]
  - SWELLING FACE [None]
